FAERS Safety Report 13432081 (Version 1)
Quarter: 2017Q2

REPORT INFORMATION
  Report Type: Spontaneous
  Country: US (occurrence: US)
  Receive Date: 20170412
  Receipt Date: 20170412
  Transmission Date: 20170830
  Serious: Yes (Other)
  Sender: FDA-Public Use
  Company Number: US-JNJFOC-20170317165

PATIENT
  Sex: Female
  Weight: 137.42 kg

DRUGS (8)
  1. WARFARIN [Concomitant]
     Active Substance: WARFARIN
     Route: 065
  2. ADEMPAS [Suspect]
     Active Substance: RIOCIGUAT
     Indication: PULMONARY ARTERIAL HYPERTENSION
     Route: 048
  3. ADEMPAS [Suspect]
     Active Substance: RIOCIGUAT
     Indication: PULMONARY ARTERIAL HYPERTENSION
     Route: 048
     Dates: start: 20160712
  4. ADEMPAS [Suspect]
     Active Substance: RIOCIGUAT
     Indication: PULMONARY ARTERIAL HYPERTENSION
     Route: 048
  5. ADEMPAS [Suspect]
     Active Substance: RIOCIGUAT
     Indication: PULMONARY ARTERIAL HYPERTENSION
     Route: 048
  6. XARELTO [Suspect]
     Active Substance: RIVAROXABAN
     Indication: PRODUCT USED FOR UNKNOWN INDICATION
     Route: 048
  7. ADEMPAS [Suspect]
     Active Substance: RIOCIGUAT
     Indication: PULMONARY ARTERIAL HYPERTENSION
     Route: 048
  8. DILTIAZEM. [Concomitant]
     Active Substance: DILTIAZEM
     Route: 065

REACTIONS (8)
  - Dizziness [Unknown]
  - Anxiety [Unknown]
  - Stress [Unknown]
  - Hypotension [Unknown]
  - Dyspnoea [Unknown]
  - Feeling abnormal [Unknown]
  - Oedema peripheral [Not Recovered/Not Resolved]
  - Haematochezia [Unknown]
